FAERS Safety Report 10432525 (Version 2)
Quarter: 2014Q3

REPORT INFORMATION
  Report Type: Spontaneous
  Country: FR (occurrence: FR)
  Receive Date: 20140905
  Receipt Date: 20140930
  Transmission Date: 20150326
  Serious: Yes (Other)
  Sender: FDA-Public Use
  Company Number: FR-ROCHE-1458620

PATIENT
  Sex: Male

DRUGS (4)
  1. XOLAIR [Suspect]
     Active Substance: OMALIZUMAB
     Indication: ASTHMA
     Route: 058
     Dates: start: 20081114
  2. PANTOPRAZOLE [Suspect]
     Active Substance: PANTOPRAZOLE SODIUM
     Indication: PRODUCT USED FOR UNKNOWN INDICATION
     Route: 048
     Dates: start: 20140727
  3. SYMBICORT [Concomitant]
     Active Substance: BUDESONIDE\FORMOTEROL FUMARATE DIHYDRATE
  4. XOLAIR [Suspect]
     Active Substance: OMALIZUMAB
     Route: 058
     Dates: start: 2010

REACTIONS (9)
  - Dyspnoea [Unknown]
  - Hiatus hernia [Unknown]
  - Red blood cell sedimentation rate increased [Not Recovered/Not Resolved]
  - Fatigue [Unknown]
  - Blood iron decreased [Not Recovered/Not Resolved]
  - Anaemia [Not Recovered/Not Resolved]
  - Asthma [Unknown]
  - Asthenia [Not Recovered/Not Resolved]
  - Serum ferritin decreased [Not Recovered/Not Resolved]
